FAERS Safety Report 21247087 (Version 1)
Quarter: 2022Q3

REPORT INFORMATION
  Report Type: Report from Study
  Country: IN (occurrence: IN)
  Receive Date: 20220824
  Receipt Date: 20220824
  Transmission Date: 20221027
  Serious: Yes (Other)
  Sender: FDA-Public Use
  Company Number: IN-SUN PHARMACEUTICAL INDUSTRIES LTD-2022R1-351768

PATIENT

DRUGS (1)
  1. ITOPRIDE\PANTOPRAZOLE [Suspect]
     Active Substance: ITOPRIDE\PANTOPRAZOLE
     Indication: Gastrooesophageal reflux disease
     Dosage: UNK, OD
     Route: 065

REACTIONS (1)
  - Gastrooesophageal reflux disease [Unknown]
